FAERS Safety Report 22116974 (Version 1)
Quarter: 2023Q1

REPORT INFORMATION
  Report Type: Spontaneous
  Country: US (occurrence: US)
  Receive Date: 20230320
  Receipt Date: 20230320
  Transmission Date: 20230417
  Serious: No
  Sender: FDA-Public Use
  Company Number: US-LEO Pharma-348750

PATIENT
  Age: 54 Year
  Sex: Female

DRUGS (16)
  1. ADBRY [Suspect]
     Active Substance: TRALOKINUMAB-LDRM
     Indication: Dermatitis atopic
     Dosage: 4 INJECTIONS FOR THE INITIAL DOSE
     Route: 058
     Dates: start: 202210
  2. ADBRY [Suspect]
     Active Substance: TRALOKINUMAB-LDRM
     Indication: Dermatitis atopic
     Dosage: 4 INJECTIONS FOR THE INITIAL DOSE
     Route: 058
     Dates: start: 202210
  3. ADBRY [Suspect]
     Active Substance: TRALOKINUMAB-LDRM
     Indication: Dermatitis atopic
     Dosage: 4 INJECTIONS FOR THE INITIAL DOSE
     Route: 058
     Dates: start: 202210
  4. ADBRY [Suspect]
     Active Substance: TRALOKINUMAB-LDRM
     Indication: Dermatitis atopic
     Dosage: 4 INJECTIONS FOR THE INITIAL DOSE
     Route: 058
     Dates: start: 202210
  5. ADBRY [Suspect]
     Active Substance: TRALOKINUMAB-LDRM
     Indication: Dermatitis atopic
     Dosage: 4 INJECTIONS FOR THE INITIAL DOSE
     Route: 058
     Dates: start: 202210
  6. ADBRY [Suspect]
     Active Substance: TRALOKINUMAB-LDRM
     Indication: Dermatitis atopic
     Dosage: 4 INJECTIONS FOR THE INITIAL DOSE
     Route: 058
     Dates: start: 202210
  7. ADBRY [Suspect]
     Active Substance: TRALOKINUMAB-LDRM
     Indication: Dermatitis atopic
     Dosage: 4 INJECTIONS FOR THE INITIAL DOSE
     Route: 058
     Dates: start: 202210
  8. ADBRY [Suspect]
     Active Substance: TRALOKINUMAB-LDRM
     Indication: Dermatitis atopic
     Dosage: 4 INJECTIONS FOR THE INITIAL DOSE
     Route: 058
     Dates: start: 202210
  9. ADBRY [Suspect]
     Active Substance: TRALOKINUMAB-LDRM
     Indication: Dermatitis atopic
     Dosage: UNKNOWN
     Route: 058
  10. ADBRY [Suspect]
     Active Substance: TRALOKINUMAB-LDRM
     Indication: Dermatitis atopic
     Dosage: UNKNOWN
     Route: 058
  11. ADBRY [Suspect]
     Active Substance: TRALOKINUMAB-LDRM
     Indication: Dermatitis atopic
     Dosage: UNKNOWN
     Route: 058
  12. ADBRY [Suspect]
     Active Substance: TRALOKINUMAB-LDRM
     Indication: Dermatitis atopic
     Dosage: UNKNOWN
     Route: 058
  13. ADBRY [Suspect]
     Active Substance: TRALOKINUMAB-LDRM
     Indication: Dermatitis atopic
     Dosage: UNKNOWN
     Route: 058
  14. ADBRY [Suspect]
     Active Substance: TRALOKINUMAB-LDRM
     Indication: Dermatitis atopic
     Dosage: UNKNOWN
     Route: 058
  15. ADBRY [Suspect]
     Active Substance: TRALOKINUMAB-LDRM
     Indication: Dermatitis atopic
     Dosage: UNKNOWN
     Route: 058
  16. ADBRY [Suspect]
     Active Substance: TRALOKINUMAB-LDRM
     Indication: Dermatitis atopic
     Dosage: UNKNOWN
     Route: 058

REACTIONS (4)
  - Ocular hyperaemia [Unknown]
  - Injection site pain [Unknown]
  - Eye pain [Unknown]
  - Drug ineffective [Unknown]

NARRATIVE: CASE EVENT DATE: 20221214
